FAERS Safety Report 10455236 (Version 5)
Quarter: 2015Q1

REPORT INFORMATION
  Report Type: Report from Study
  Country: CA (occurrence: CA)
  Receive Date: 20140916
  Receipt Date: 20150220
  Transmission Date: 20150720
  Serious: Yes (Other)
  Sender: FDA-Public Use
  Company Number: CA-AMGEN-CANSP2014065076

PATIENT
  Age: 83 Year
  Sex: Female

DRUGS (3)
  1. PROLIA [Suspect]
     Active Substance: DENOSUMAB
     Indication: OSTEOPOROSIS POSTMENOPAUSAL
     Dosage: 60 MG, Q6MO
     Route: 058
     Dates: start: 20140819
  2. FOSINOPRIL [Concomitant]
     Active Substance: FOSINOPRIL
     Dosage: 15 MG, UNK (AFTER LUNCH)
  3. BABY ASPIRIN [Concomitant]
     Active Substance: ASPIRIN
     Indication: CARDIAC DISORDER
     Dosage: UNK

REACTIONS (26)
  - Headache [Unknown]
  - Rash macular [Unknown]
  - Abdominal pain upper [Unknown]
  - Pruritus [Unknown]
  - Bone pain [Not Recovered/Not Resolved]
  - Cyanosis [Unknown]
  - Skin irritation [Unknown]
  - Muscle atrophy [Unknown]
  - Malaise [Unknown]
  - Rash erythematous [Unknown]
  - Myalgia [Recovered/Resolved]
  - Erythema [Unknown]
  - Blood cholesterol increased [Unknown]
  - Alopecia [Unknown]
  - Skin wrinkling [Not Recovered/Not Resolved]
  - Skin disorder [Unknown]
  - Constipation [Unknown]
  - Lung infection [Unknown]
  - Urinary tract infection [Unknown]
  - Asthenia [Unknown]
  - Asthma [Not Recovered/Not Resolved]
  - Skin sensitisation [Unknown]
  - Acne [Unknown]
  - Eyelid oedema [Unknown]
  - Contusion [Unknown]
  - Insomnia [Unknown]

NARRATIVE: CASE EVENT DATE: 20140819
